FAERS Safety Report 7709317-6 (Version None)
Quarter: 2011Q3

REPORT INFORMATION
  Report Type: 
  Country: None (occurrence: None)
  Receive Date: 20110825
  Receipt Date: 20110816
  Transmission Date: 20111222
  Serious: Yes (Hospitalization)
  Sender: FDA-Public Use
  Company Number: FR-BAXTER-2011BH024581

PATIENT
  Age: 5 Year
  Sex: Male
  Weight: 17 kg

DRUGS (4)
  1. GAMMAGARD LIQUID [Suspect]
     Indication: OFF LABEL USE
     Route: 042
     Dates: start: 20110721, end: 20110721
  2. GAMMAGARD LIQUID [Suspect]
     Route: 042
     Dates: start: 20110721, end: 20110721
  3. GAMMAGARD LIQUID [Suspect]
     Route: 042
     Dates: start: 20110721, end: 20110721
  4. GAMMAGARD LIQUID [Suspect]
     Indication: IDIOPATHIC THROMBOCYTOPENIC PURPURA
     Route: 042
     Dates: start: 20110721, end: 20110721

REACTIONS (3)
  - MEDICATION ERROR [None]
  - PYREXIA [None]
  - INCORRECT DRUG ADMINISTRATION RATE [None]
